FAERS Safety Report 6996692-3 (Version None)
Quarter: 2010Q3

REPORT INFORMATION
  Report Type: 
  Country: None (occurrence: None)
  Receive Date: 20100918
  Receipt Date: 20090616
  Transmission Date: 20110219
  Serious: Yes (Other)
  Sender: FDA-Public Use
  Company Number: US-WYE-H09771309

PATIENT
  Sex: Male

DRUGS (1)
  1. EFFEXOR XR [Suspect]
     Dosage: TAKING 75 MG, 3 CAPSULES PER DAY, INSTEAD OF PRESCRIBED 75 MG, 1 CAPSULE PER DAY
     Route: 048

REACTIONS (3)
  - INTENTIONAL DRUG MISUSE [None]
  - SELF-MEDICATION [None]
  - SUICIDAL IDEATION [None]
